FAERS Safety Report 18482984 (Version 1)
Quarter: 2020Q4

REPORT INFORMATION
  Report Type: Spontaneous
  Country: US (occurrence: US)
  Receive Date: 20201109
  Receipt Date: 20201109
  Transmission Date: 20210114
  Serious: No
  Sender: FDA-Public Use
  Company Number: US-FOUNDATIONCONSUMERHC-2020-US-017683

PATIENT
  Age: 44 Year
  Sex: Female
  Weight: 72.58 kg

DRUGS (1)
  1. PLAN B ONE-STEP [Suspect]
     Active Substance: LEVONORGESTREL
     Indication: POST COITAL CONTRACEPTION
     Dosage: 1.5MG ON 08/29/20 AND ON 08/30/20
     Route: 048
     Dates: start: 20200829, end: 20200830

REACTIONS (9)
  - Vaginal haemorrhage [Recovered/Resolved]
  - Malaise [Recovered/Resolved]
  - Vaginal discharge [Recovered/Resolved]
  - Hypersomnia [Not Recovered/Not Resolved]
  - Nausea [Recovered/Resolved]
  - Abdominal discomfort [Recovered/Resolved]
  - Vaginal haemorrhage [Not Recovered/Not Resolved]
  - Menstruation delayed [Not Recovered/Not Resolved]
  - Vomiting [Recovered/Resolved]

NARRATIVE: CASE EVENT DATE: 20200829
